FAERS Safety Report 24923994 (Version 3)
Quarter: 2025Q2

REPORT INFORMATION
  Report Type: Spontaneous
  Country: AU (occurrence: AU)
  Receive Date: 20250204
  Receipt Date: 20250414
  Transmission Date: 20250716
  Serious: Yes (Hospitalization, Other)
  Sender: ALEXION PHARMACEUTICALS
  Company Number: AU-ASTRAZENECA-202501GLO029163AU

PATIENT
  Age: 70 Year

DRUGS (13)
  1. ROSUVASTATIN [Interacting]
     Active Substance: ROSUVASTATIN
     Dosage: 20 MILLIGRAM, QD ONE EACH MORNING
     Route: 065
  2. CANDESARTAN CILEXETIL [Interacting]
     Active Substance: CANDESARTAN CILEXETIL
     Dosage: 16 MILLIGRAM, QD PREVIOUSLY BEEN PRESCRIBED A WHOLE 16MG CANDESARTAN TABLET DAILY AND DECIDED TO REDUCE THE DOSE TO 8MG
     Route: 065
  3. CANDESARTAN CILEXETIL [Interacting]
     Active Substance: CANDESARTAN CILEXETIL
     Dosage: 4 MILLIGRAM, QD
     Route: 065
  4. CARVEDILOL [Interacting]
     Active Substance: CARVEDILOL
     Dosage: 25 MILLIGRAM, QD
     Route: 065
  5. WARFARIN [Interacting]
     Active Substance: WARFARIN
     Dosage: 1 MILLIGRAM, QD ONE IN THE EVENING ACCORDING TO INR
     Route: 065
  6. WARFARIN [Interacting]
     Active Substance: WARFARIN
     Dosage: 1 MILLIGRAM, QD ONE IN THE EVENING ACCORDING TO INR
     Route: 065
  7. ASPIRIN [Interacting]
     Active Substance: ASPIRIN
     Dosage: 100 MILLIGRAM, QD ONE EACH MORNING
     Route: 065
  8. FUROSEMIDE [Interacting]
     Active Substance: FUROSEMIDE
     Dosage: ALTERNATING ONE/TWO TABLETS EACH MORNING
     Route: 065
  9. METFORMIN [Interacting]
     Active Substance: METFORMIN HYDROCHLORIDE
     Dosage: ONE TWICE A DAY
     Route: 065
  10. PROPYLTHIOURACIL [Interacting]
     Active Substance: PROPYLTHIOURACIL
     Dosage: ONE THREE TIMES A DAY
     Route: 065
  11. AMIODARONE [Interacting]
     Active Substance: AMIODARONE
     Route: 065
  12. EZETIMIBE [Interacting]
     Active Substance: EZETIMIBE
     Dosage: ONE EACH MORNING
     Route: 065
  13. GLICLAZIDE [Interacting]
     Active Substance: GLICLAZIDE
     Dosage: TWO EACH MORNING
     Route: 065

REACTIONS (6)
  - Renal impairment [Recovering/Resolving]
  - Hypotension [Recovering/Resolving]
  - Product physical issue [Unknown]
  - Labelled drug-drug interaction issue [Unknown]
  - Incorrect dose administered [Unknown]
  - Dizziness [Recovering/Resolving]
